FAERS Safety Report 17359462 (Version 1)
Quarter: 2020Q1

REPORT INFORMATION
  Report Type: Spontaneous
  Country: FR (occurrence: FR)
  Receive Date: 20200203
  Receipt Date: 20200203
  Transmission Date: 20200409
  Serious: Yes (Hospitalization)
  Sender: FDA-Public Use
  Company Number: FR-ACCORD-171488

PATIENT
  Age: 55 Year
  Sex: Male
  Weight: 62 kg

DRUGS (3)
  1. ZYPREXA [Suspect]
     Active Substance: OLANZAPINE
     Indication: PRODUCT USE IN UNAPPROVED INDICATION
     Dosage: UNKNOWN DOSAGE
     Route: 048
     Dates: start: 201912, end: 201912
  2. PEMETREXED ZENTIVA [Suspect]
     Active Substance: PEMETREXED
     Indication: LUNG ADENOCARCINOMA STAGE IV
     Dosage: STRENGTH: 25 MG / ML, 21-OCT-19: C1 : 23-NOV-2019 : C2
     Route: 041
     Dates: start: 20191021, end: 20191123
  3. CARBOPLATIN ACCORD [Suspect]
     Active Substance: CARBOPLATIN
     Indication: LUNG ADENOCARCINOMA STAGE IV
     Dosage: 21-OCT-2019: C1 670 MG, 23-NOV-2019: C2 480 MG
     Route: 041
     Dates: start: 20191021, end: 20191123

REACTIONS (2)
  - Blood bilirubin increased [Recovering/Resolving]
  - Hepatocellular injury [Recovering/Resolving]

NARRATIVE: CASE EVENT DATE: 20191223
